FAERS Safety Report 13322630 (Version 4)
Quarter: 2018Q1

REPORT INFORMATION
  Report Type: Report from Study
  Country: JP (occurrence: JP)
  Receive Date: 20170310
  Receipt Date: 20180223
  Transmission Date: 20180508
  Serious: Yes (Life-Threatening, Hospitalization, Other)
  Sender: FDA-Public Use
  Company Number: JP-BRISTOL-MYERS SQUIBB COMPANY-BMS-2017-020842

PATIENT
  Age: 42 Year
  Sex: Female
  Weight: 59 kg

DRUGS (6)
  1. NIVOLUMAB [Suspect]
     Active Substance: NIVOLUMAB
     Indication: MALIGNANT MELANOMA
     Dosage: UNK
     Route: 041
     Dates: start: 201504, end: 201701
  2. TRAMCET [Concomitant]
     Active Substance: ACETAMINOPHEN\TRAMADOL
     Indication: ADVERSE EVENT
     Dosage: 3 DF, SINGLE
     Route: 048
     Dates: end: 20170301
  3. SENNOSIDE A+B [Concomitant]
     Active Substance: SENNOSIDES A AND B
     Indication: CONSTIPATION
     Dosage: 24 MG, SINGLE
     Route: 048
     Dates: end: 20170301
  4. IPILIMUMAB [Suspect]
     Active Substance: IPILIMUMAB
     Indication: MALIGNANT MELANOMA
     Dosage: 3 MG/KG, UNK
     Route: 041
     Dates: start: 20170209, end: 20170516
  5. TERPERAN [Concomitant]
     Active Substance: METOCLOPRAMIDE HYDROCHLORIDE
     Indication: ADVERSE EVENT
     Dosage: 15 MG, SINGLE
     Route: 048
     Dates: end: 20170301
  6. LYRICA [Concomitant]
     Active Substance: PREGABALIN
     Indication: ADVERSE EVENT
     Dosage: 150 MG, SINGLE
     Route: 048
     Dates: start: 20170208, end: 20170301

REACTIONS (7)
  - Duodenitis [Recovered/Resolved]
  - Hypopituitarism [Recovered/Resolved]
  - Hypothyroidism [Recovered/Resolved]
  - Pyrexia [Recovered/Resolved]
  - Oedema [Unknown]
  - Lymphadenopathy [Unknown]
  - White blood cell count decreased [Recovered/Resolved]

NARRATIVE: CASE EVENT DATE: 20170228
